FAERS Safety Report 5152566-4 (Version None)
Quarter: 2006Q4

REPORT INFORMATION
  Report Type: 
  Country: None (occurrence: None)
  Receive Date: 20061116
  Receipt Date: 20061106
  Transmission Date: 20070319
  Serious: Yes (Life-Threatening, Hospitalization)
  Sender: FDA-Public Use
  Company Number: DE-BOEHRINGER INGELHEIM PHARMACEUTICALS, INC.-2006-DE-06028DE

PATIENT
  Sex: Male
  Weight: 145 kg

DRUGS (3)
  1. MICARDIS HCT [Suspect]
     Indication: CARDIAC FAILURE
     Dosage: 80 MG TELMISARTAN + 12,5 MG HCT
     Route: 048
     Dates: start: 20061016, end: 20061026
  2. MICARDIS HCT [Suspect]
     Indication: LEFT VENTRICULAR FAILURE
  3. TOREM [Concomitant]
     Indication: CARDIAC FAILURE
     Route: 048
     Dates: start: 20061016, end: 20061026

REACTIONS (2)
  - PANCREATITIS ACUTE [None]
  - RENAL FAILURE ACUTE [None]
